FAERS Safety Report 8049415-3 (Version None)
Quarter: 2012Q1

REPORT INFORMATION
  Report Type: 
  Country: None (occurrence: None)
  Receive Date: 20120117
  Receipt Date: 20120113
  Transmission Date: 20120608
  Serious: Yes (Hospitalization)
  Sender: FDA-Public Use
  Company Number: FR-ROCHE-802009

PATIENT
  Sex: Male

DRUGS (10)
  1. NITROGLYCERIN [Concomitant]
  2. ALFUZOSIN HCL [Concomitant]
  3. FLUINDIONE [Concomitant]
  4. PEGASYS [Suspect]
     Indication: THROMBOCYTOSIS
     Route: 065
     Dates: start: 20110401, end: 20110829
  5. PROSCAR [Concomitant]
  6. BUMETANIDE [Concomitant]
  7. FOSINOPRIL SODIUM [Concomitant]
  8. DIGOXIN [Concomitant]
     Dosage: DRUG NAME: HEMIGOXINE
  9. POTASSIUM CHLORIDE [Concomitant]
  10. ACETAMINOPHEN [Concomitant]

REACTIONS (1)
  - CARDIAC FAILURE [None]
